FAERS Safety Report 6547864-3 (Version None)
Quarter: 2010Q1

REPORT INFORMATION
  Report Type: 
  Country: None (occurrence: None)
  Receive Date: 20100124
  Receipt Date: 20091106
  Transmission Date: 20100710
  Serious: No
  Sender: FDA-Public Use
  Company Number: US-ALEXION-A200900934

PATIENT
  Sex: Male

DRUGS (2)
  1. SOLIRIS [Suspect]
     Indication: PAROXYSMAL NOCTURNAL HAEMOGLOBINURIA
     Dosage: 600 MG QW
     Route: 042
     Dates: start: 20090720, end: 20090810
  2. SOLIRIS [Suspect]
     Dosage: 900 MG Q2W
     Route: 042
     Dates: start: 20090817, end: 20091026

REACTIONS (6)
  - ABDOMINAL PAIN UPPER [None]
  - CHILLS [None]
  - DRUG INEFFECTIVE [None]
  - DYSPNOEA [None]
  - FATIGUE [None]
  - SOMNOLENCE [None]
